FAERS Safety Report 23080515 (Version 1)
Quarter: 2023Q4

REPORT INFORMATION
  Report Type: Spontaneous
  Country: US (occurrence: None)
  Receive Date: 20231018
  Receipt Date: 20231018
  Transmission Date: 20240110
  Serious: Yes (Hospitalization)
  Sender: FDA-Public Use
  Company Number: None

PATIENT
  Age: 73 Year
  Sex: Male
  Weight: 85 kg

DRUGS (1)
  1. PACERONE [Suspect]
     Active Substance: AMIODARONE HYDROCHLORIDE
     Dosage: FREQUENCY : DAILY;?
     Route: 048
     Dates: start: 20200618, end: 20220331

REACTIONS (6)
  - Respiratory depression [None]
  - Respiratory distress [None]
  - Therapy cessation [None]
  - Pulmonary toxicity [None]
  - Electrocardiogram QT prolonged [None]
  - Drug level abnormal [None]

NARRATIVE: CASE EVENT DATE: 20220404
